FAERS Safety Report 8545334-4 (Version None)
Quarter: 2012Q3

REPORT INFORMATION
  Report Type: 
  Country: None (occurrence: None)
  Receive Date: 20120727
  Receipt Date: 20120720
  Transmission Date: 20120928
  Serious: Yes (Hospitalization)
  Sender: FDA-Public Use
  Company Number: DE-ASTELLAS-2012EU004372

PATIENT
  Sex: Female

DRUGS (1)
  1. PROTOPIC [Suspect]
     Indication: PSORIASIS
     Dosage: UNK %, UNKNOWN/D
     Route: 065

REACTIONS (4)
  - FEELING HOT [None]
  - ADVERSE DRUG REACTION [None]
  - PAIN [None]
  - OFF LABEL USE [None]
